FAERS Safety Report 18846718 (Version 1)
Quarter: 2021Q1

REPORT INFORMATION
  Report Type: Report from Study
  Country: US (occurrence: US)
  Receive Date: 20210203
  Receipt Date: 20210203
  Transmission Date: 20210419
  Serious: No
  Sender: FDA-Public Use
  Company Number: US-EXELIXIS-CABO-20029237

PATIENT
  Age: 84 Year
  Sex: Male

DRUGS (3)
  1. OPDIVO [Suspect]
     Active Substance: NIVOLUMAB
     Indication: RENAL CELL CARCINOMA
     Dosage: UNK UNK, Q4WEEKS
     Dates: start: 201602
  2. CABOMETYX [Suspect]
     Active Substance: CABOZANTINIB S-MALATE
     Indication: RENAL CELL CARCINOMA
     Dosage: 20 MG, QD
     Dates: start: 20200317
  3. LENVIMA [Concomitant]
     Active Substance: LENVATINIB
     Dosage: UNK

REACTIONS (11)
  - Red blood cell count abnormal [Unknown]
  - Blood urea increased [Not Recovered/Not Resolved]
  - Fatigue [Not Recovered/Not Resolved]
  - Blood urine present [Recovered/Resolved]
  - Glomerular filtration rate decreased [Unknown]
  - Blood creatinine increased [Not Recovered/Not Resolved]
  - Blood alkaline phosphatase increased [Unknown]
  - Decreased appetite [Not Recovered/Not Resolved]
  - Haemoglobin decreased [Not Recovered/Not Resolved]
  - Blood pressure increased [Recovered/Resolved]
  - Creatinine renal clearance decreased [Unknown]

NARRATIVE: CASE EVENT DATE: 20200401
